FAERS Safety Report 21012396 (Version 1)
Quarter: 2022Q2

REPORT INFORMATION
  Report Type: Spontaneous
  Country: US (occurrence: US)
  Receive Date: 20220627
  Receipt Date: 20220627
  Transmission Date: 20220720
  Serious: No
  Sender: FDA-Public Use
  Company Number: US-SA-2021SA205449

PATIENT
  Age: 71 Year
  Sex: Female

DRUGS (3)
  1. DILTIAZEM HYDROCHLORIDE [Suspect]
     Active Substance: DILTIAZEM HYDROCHLORIDE
     Indication: Arrhythmia
     Route: 048
     Dates: start: 202007, end: 202010
  2. DILTIAZEM HYDROCHLORIDE [Suspect]
     Active Substance: DILTIAZEM HYDROCHLORIDE
     Indication: Off label use
     Route: 048
     Dates: start: 202010, end: 20210329
  3. PRILOSEC [Concomitant]
     Active Substance: OMEPRAZOLE MAGNESIUM
     Indication: Product used for unknown indication

REACTIONS (3)
  - Lichen planopilaris [Not Recovered/Not Resolved]
  - Rash [Unknown]
  - Product use in unapproved indication [Unknown]
